FAERS Safety Report 8390471-0 (Version None)
Quarter: 2012Q2

REPORT INFORMATION
  Report Type: 
  Country: None (occurrence: None)
  Receive Date: 20120516
  Receipt Date: 20120510
  Transmission Date: 20120825
  Serious: Yes (Death)
  Sender: FDA-Public Use
  Company Number: ACO_29518_2012

PATIENT
  Age: 58 Year
  Sex: Male

DRUGS (3)
  1. ANALGESICS AND ANESTHETICS [Concomitant]
  2. AMPYRA [Suspect]
     Indication: PRODUCT USED FOR UNKNOWN INDICATION
     Dosage: 10 MG, BID, ORAL
     Route: 048
  3. COPAXONE [Concomitant]

REACTIONS (1)
  - MYOCARDIAL INFARCTION [None]
